FAERS Safety Report 10166473 (Version 2)
Quarter: 2014Q2

REPORT INFORMATION
  Report Type: Spontaneous
  Country: FR (occurrence: FR)
  Receive Date: 20140512
  Receipt Date: 20140519
  Transmission Date: 20141212
  Serious: Yes (Hospitalization)
  Sender: FDA-Public Use
  Company Number: FR-009507513-1405FRA002062

PATIENT
  Age: 79 Year
  Sex: Male

DRUGS (18)
  1. ESMERON [Suspect]
     Indication: ANAESTHESIA
     Dosage: UNK
     Route: 042
     Dates: start: 20121018, end: 20121018
  2. HEPARIN SODIUM [Suspect]
     Indication: EXTRACORPOREAL CIRCULATION
     Dosage: 24000 IU, QD
     Route: 042
     Dates: start: 20121018, end: 20121018
  3. PLAVIX [Suspect]
     Indication: CARDIOVASCULAR EVENT PROPHYLAXIS
     Dosage: 1 DF, QD
     Route: 048
  4. MIDAZOLAM [Suspect]
     Indication: ANAESTHESIA
     Dosage: UNK
     Route: 042
     Dates: start: 20121018, end: 20121018
  5. KETAMINE HYDROCHLORIDE [Suspect]
     Indication: ANAESTHESIA
     Dosage: UNK
     Route: 042
     Dates: start: 20121018, end: 20121018
  6. ULTIVA [Suspect]
     Indication: ANAESTHESIA
     Dosage: UNK
     Route: 042
     Dates: start: 20121018, end: 20121018
  7. PROTAMINE SULFATE [Suspect]
     Dosage: UNK
     Route: 042
     Dates: start: 20121018, end: 20121018
  8. EXACYL [Suspect]
     Indication: HAEMORRHAGE PROPHYLAXIS
     Dosage: UNK
     Route: 042
     Dates: start: 20121018, end: 20121018
  9. NEBIVOLOL [Suspect]
     Indication: CARDIOVASCULAR EVENT PROPHYLAXIS
     Dosage: 1 DF, QD
     Route: 048
     Dates: end: 20121018
  10. ATARAX (HYDROXYZINE HYDROCHLORIDE) [Concomitant]
     Dosage: 50 MG, BID
     Route: 048
     Dates: start: 20121017, end: 20121020
  11. PROPOFOL LIPURO [Suspect]
     Indication: ANAESTHESIA
     Dosage: UNK
     Route: 042
     Dates: start: 20121018, end: 20121018
  12. LEXOMIL [Suspect]
     Indication: ANXIETY
     Dosage: 0.5 DF, QD
     Route: 048
     Dates: end: 20121018
  13. GABAPENTIN [Suspect]
     Dosage: 1 DF, QD
     Route: 048
     Dates: start: 20121019, end: 20121019
  14. SUFENTANIL [Suspect]
     Indication: ANAESTHESIA
     Dosage: UNK
     Route: 042
     Dates: start: 20121018, end: 20121018
  15. ZINNAT [Suspect]
     Indication: ANTIBIOTIC THERAPY
     Dosage: UNK
     Route: 042
     Dates: start: 20121018, end: 20121018
  16. LYRICA [Concomitant]
     Dosage: 1 DF, BID
     Route: 048
  17. MIANSERIN HYDROCHLORIDE [Concomitant]
     Indication: ANXIETY
     Dosage: 1 DF, QD
     Route: 048
  18. MIANSERIN HYDROCHLORIDE [Concomitant]
     Indication: DEPRESSION

REACTIONS (1)
  - Post procedural haemorrhage [Recovered/Resolved]
